FAERS Safety Report 4324064-9 (Version None)
Quarter: 2004Q1

REPORT INFORMATION
  Report Type: 
  Country: None (occurrence: None)
  Receive Date: 20040326
  Receipt Date: 20031209
  Transmission Date: 20041129
  Serious: No
  Sender: FDA-Public Use
  Company Number: US-GLAXOSMITHKLINE-A0443258A

PATIENT
  Age: 67 Year
  Sex: Male
  Weight: 68.2 kg

DRUGS (6)
  1. ADVAIR DISKUS 100/50 [Suspect]
     Dosage: 1PUFF TWICE PER DAY
     Route: 055
     Dates: start: 20020601
  2. FLOVENT [Concomitant]
     Dosage: 2PUFF TWICE PER DAY
     Route: 055
     Dates: start: 20000101, end: 20020101
  3. SALMETEROL [Concomitant]
     Dosage: 2PUFF TWICE PER DAY
     Route: 055
     Dates: start: 20000101, end: 20020101
  4. COMBIVENT [Concomitant]
     Route: 055
     Dates: start: 19940101
  5. AZMACORT [Concomitant]
     Dosage: 2PUFF FOUR TIMES PER DAY
     Route: 055
     Dates: start: 19990101
  6. LIPITOR [Concomitant]

REACTIONS (3)
  - INCREASED TENDENCY TO BRUISE [None]
  - SKIN FRAGILITY [None]
  - SKIN LESION [None]
